FAERS Safety Report 21095909 (Version 1)
Quarter: 2022Q3

REPORT INFORMATION
  Report Type: Spontaneous
  Country: US (occurrence: US)
  Receive Date: 20220718
  Receipt Date: 20220718
  Transmission Date: 20221027
  Serious: No
  Sender: FDA-Public Use
  Company Number: US-SA-SAC20220712000345

PATIENT
  Age: 62 Year
  Sex: Female

DRUGS (1)
  1. DUPIXENT [Suspect]
     Active Substance: DUPILUMAB
     Indication: Dermatitis atopic
     Dosage: 300 MG
     Route: 058
     Dates: start: 202001

REACTIONS (4)
  - Blister [Unknown]
  - Dyshidrotic eczema [Unknown]
  - Dermatitis atopic [Unknown]
  - Injection site reaction [Recovered/Resolved]

NARRATIVE: CASE EVENT DATE: 20220708
